FAERS Safety Report 14092978 (Version 1)
Quarter: 2017Q4

REPORT INFORMATION
  Report Type: Spontaneous
  Country: US (occurrence: US)
  Receive Date: 20171016
  Receipt Date: 20171016
  Transmission Date: 20180321
  Serious: No
  Sender: FDA-Public Use
  Company Number: US-009507513-1709USA013292

PATIENT
  Age: 58 Year
  Sex: Female

DRUGS (3)
  1. ZEPATIER [Suspect]
     Active Substance: ELBASVIR\GRAZOPREVIR
     Indication: HEPATITIS C
     Dosage: UNK
     Route: 048
     Dates: start: 2017
  2. INSULIN [Concomitant]
     Active Substance: INSULIN NOS
  3. VITAMINS (UNSPECIFIED) [Concomitant]
     Active Substance: VITAMINS

REACTIONS (9)
  - Poor quality sleep [Recovering/Resolving]
  - Pharyngeal disorder [Recovered/Resolved]
  - Vomiting [Recovering/Resolving]
  - Skin swelling [Recovered/Resolved]
  - Pharyngeal erythema [Recovered/Resolved]
  - Faeces discoloured [Recovering/Resolving]
  - Rash papular [Recovered/Resolved]
  - Pruritus [Recovered/Resolved]
  - Diarrhoea [Recovering/Resolving]

NARRATIVE: CASE EVENT DATE: 2017
